FAERS Safety Report 11513421 (Version 1)
Quarter: 2015Q3

REPORT INFORMATION
  Report Type: Spontaneous
  Country: US (occurrence: US)
  Receive Date: 20150916
  Receipt Date: 20150916
  Transmission Date: 20151125
  Serious: No
  Sender: FDA-Public Use
  Company Number: US-BIOGENIDEC-2015BI125419

PATIENT
  Sex: Female

DRUGS (1)
  1. TECFIDERA [Suspect]
     Active Substance: DIMETHYL FUMARATE
     Indication: MULTIPLE SCLEROSIS

REACTIONS (8)
  - Feeling abnormal [Unknown]
  - Panic reaction [Unknown]
  - Blood homocysteine increased [Unknown]
  - Rash [Unknown]
  - Fear [Unknown]
  - Vitamin D increased [Unknown]
  - Multiple sclerosis [Unknown]
  - White blood cell count decreased [Unknown]
